FAERS Safety Report 12939032 (Version 1)
Quarter: 2016Q4

REPORT INFORMATION
  Report Type: Spontaneous
  Country: US (occurrence: US)
  Receive Date: 20161113
  Receipt Date: 20161113
  Transmission Date: 20170207
  Serious: Yes (Death, Life-Threatening, Hospitalization)
  Sender: FDA-Public Use
  Company Number: None

PATIENT
  Age: 64 Year
  Sex: Female
  Weight: 50.85 kg

DRUGS (1)
  1. VELETRI [Suspect]
     Active Substance: EPOPROSTENOL
     Indication: PULMONARY HYPERTENSION
     Dosage: CONTINUOUS; IV DRIP
     Route: 041
     Dates: start: 20131001, end: 20160507

REACTIONS (4)
  - Pulse absent [None]
  - Device infusion issue [None]
  - Incorrect dose administered by device [None]
  - Device alarm issue [None]

NARRATIVE: CASE EVENT DATE: 20160507
